FAERS Safety Report 11471431 (Version 2)
Quarter: 2015Q3

REPORT INFORMATION
  Report Type: Spontaneous
  Country: US (occurrence: US)
  Receive Date: 20150903
  Receipt Date: 20150903
  Transmission Date: 20151125
  Serious: Yes (Other)
  Sender: FDA-Public Use
  Company Number: US-ELI_LILLY_AND_COMPANY-US201112007261

PATIENT
  Age: 49 Year
  Sex: Female
  Weight: 95.24 kg

DRUGS (5)
  1. OXYCODONE [Concomitant]
     Active Substance: OXYCODONE
  2. HYDROCODONE [Concomitant]
     Active Substance: HYDROCODONE
  3. CYMBALTA [Suspect]
     Active Substance: DULOXETINE HYDROCHLORIDE
     Indication: BACK PAIN
     Dosage: 60 MG, QD
     Route: 048
     Dates: start: 20090213, end: 20110905
  4. VALIUM [Concomitant]
     Active Substance: DIAZEPAM
  5. VITAMIN D [Concomitant]
     Active Substance: CHOLECALCIFEROL

REACTIONS (7)
  - Feeling abnormal [Recovered/Resolved]
  - Suicidal ideation [Recovered/Resolved]
  - Thinking abnormal [Recovered/Resolved]
  - Withdrawal syndrome [Recovered/Resolved]
  - Drug ineffective [Recovered/Resolved]
  - Back disorder [Unknown]
  - Intentional product misuse [Recovered/Resolved]

NARRATIVE: CASE EVENT DATE: 200908
